FAERS Safety Report 11709236 (Version 1)
Quarter: 2015Q4

REPORT INFORMATION
  Report Type: Spontaneous
  Country: US (occurrence: US)
  Receive Date: 20151104
  Receipt Date: 20151104
  Transmission Date: 20160304
  Serious: No
  Sender: FDA-Public Use
  Company Number: US-ELI_LILLY_AND_COMPANY-US201109001408

PATIENT
  Sex: Female

DRUGS (3)
  1. FORTEO [Suspect]
     Active Substance: TERIPARATIDE
     Indication: OSTEOPOROSIS
     Dosage: 20 UG, QD
     Dates: start: 20110802
  2. VITAMIN D [Concomitant]
     Active Substance: CHOLECALCIFEROL
  3. CALTRATE [Concomitant]
     Active Substance: CALCIUM CARBONATE

REACTIONS (5)
  - Energy increased [Unknown]
  - Pain in extremity [Recovered/Resolved]
  - Blood pressure decreased [Unknown]
  - Appetite disorder [Unknown]
  - Nausea [Recovered/Resolved]
